FAERS Safety Report 10082928 (Version 1)
Quarter: 2014Q2

REPORT INFORMATION
  Report Type: Report from Study
  Country: FR (occurrence: FR)
  Receive Date: 20140417
  Receipt Date: 20140417
  Transmission Date: 20141212
  Serious: Yes (Death)
  Sender: FDA-Public Use
  Company Number: FR-ROCHE-1381160

PATIENT
  Age: 41 Year
  Sex: Male

DRUGS (1)
  1. ZELBORAF [Suspect]
     Indication: NEOPLASM MALIGNANT
     Route: 065

REACTIONS (1)
  - Liver disorder [Fatal]
